FAERS Safety Report 9858934 (Version 1)
Quarter: 2014Q1

REPORT INFORMATION
  Report Type: Spontaneous
  Country: SE (occurrence: SE)
  Receive Date: 20140131
  Receipt Date: 20140131
  Transmission Date: 20141002
  Serious: Yes (Death)
  Sender: FDA-Public Use
  Company Number: SE-B.I. PHARMACEUTICALS,INC./RIDGEFIELD-2014-BI-04401SW

PATIENT
  Age: 73 Year
  Sex: Male

DRUGS (7)
  1. PRADAXA [Suspect]
     Indication: ATRIAL FIBRILLATION
     Dosage: 300 MG
     Route: 048
     Dates: start: 20130306, end: 20130914
  2. METFORMIN MEDA [Concomitant]
     Dosage: 1500 MG
     Route: 048
     Dates: start: 20130306, end: 20130914
  3. ALVEDON / PARACETAMOL [Concomitant]
     Dosage: FORMULATION:FILM COATED TABLET
     Route: 048
  4. INOLAXOL / STERCULIA GUM [Concomitant]
     Route: 048
  5. ENALAPRIL ACTAVIS [Concomitant]
     Dosage: 10 MG
     Route: 048
  6. IMOVANE / ZOPICLONE [Concomitant]
  7. NORVASC / AMLODIPINE BESILATE [Concomitant]
     Dosage: 10 MG
     Route: 048

REACTIONS (1)
  - Sudden cardiac death [Fatal]
